FAERS Safety Report 17775539 (Version 1)
Quarter: 2020Q2

REPORT INFORMATION
  Report Type: Spontaneous
  Country: US (occurrence: US)
  Receive Date: 20200513
  Receipt Date: 20200513
  Transmission Date: 20200714
  Serious: No
  Sender: FDA-Public Use
  Company Number: None

PATIENT
  Age: 61 Year
  Sex: Female
  Weight: 99 kg

DRUGS (27)
  1. FUROSEMIDE. [Concomitant]
     Active Substance: FUROSEMIDE
  2. SINGULAIR [Concomitant]
     Active Substance: MONTELUKAST SODIUM
  3. VITAMIN B12 [Concomitant]
     Active Substance: CYANOCOBALAMIN
  4. DOXAZOSIN [Concomitant]
     Active Substance: DOXAZOSIN MESYLATE
  5. CYCLOBENZAPRINE. [Concomitant]
     Active Substance: CYCLOBENZAPRINE
  6. VENTOLIN HFA [Concomitant]
     Active Substance: ALBUTEROL SULFATE
  7. ZINC. [Concomitant]
     Active Substance: ZINC
  8. PILOCARPINE HCL [Concomitant]
     Active Substance: PILOCARPINE HYDROCHLORIDE
  9. ELETRIPTAN. [Concomitant]
     Active Substance: ELETRIPTAN
  10. UBRELVY [Concomitant]
     Active Substance: UBROGEPANT
  11. PSYLLIUM SEED HUSK [Concomitant]
  12. SUMATRIPTAN INJECTION [Concomitant]
     Active Substance: SUMATRIPTAN
  13. NURTEC ODT [Concomitant]
     Active Substance: RIMEGEPANT SULFATE
  14. PROBIOTICS WITH ACIDOPHILUS [Concomitant]
  15. VITAMIN D3 [Concomitant]
     Active Substance: CHOLECALCIFEROL
  16. CALCIUM [Concomitant]
     Active Substance: CALCIUM
  17. EMGALITY [Suspect]
     Active Substance: GALCANEZUMAB-GNLM
     Indication: MIGRAINE
     Dosage: ?          QUANTITY:1 INJECTION(S);OTHER FREQUENCY:MONTHLY;?
     Route: 058
     Dates: start: 20200128, end: 20200428
  18. DILTIAZEM. [Concomitant]
     Active Substance: DILTIAZEM
  19. VITAMIN C [Concomitant]
     Active Substance: ASCORBIC ACID
  20. RESTASIS [Concomitant]
     Active Substance: CYCLOSPORINE
  21. EMGALITY [Concomitant]
     Active Substance: GALCANEZUMAB-GNLM
  22. MELATONIN [Concomitant]
     Active Substance: MELATONIN
  23. MAGIC MOUTHWASH [Concomitant]
     Active Substance: DIPHENHYDRAMINE HYDROCHLORIDE\LIDOCAINE HYDROCHLORIDE\NYSTATIN
  24. MAGNESIUM [Concomitant]
     Active Substance: MAGNESIUM
  25. OMEPRAZOLE. [Concomitant]
     Active Substance: OMEPRAZOLE
  26. ONDANSETRON [Concomitant]
     Active Substance: ONDANSETRON
  27. BIOTIN [Concomitant]
     Active Substance: BIOTIN

REACTIONS (4)
  - Alopecia [None]
  - Erythema [None]
  - Skin exfoliation [None]
  - Pruritus [None]

NARRATIVE: CASE EVENT DATE: 20200309
